FAERS Safety Report 5843482-0 (Version None)
Quarter: 2008Q3

REPORT INFORMATION
  Report Type: 
  Country: None (occurrence: None)
  Receive Date: 20080811
  Receipt Date: 20080731
  Transmission Date: 20090109
  Serious: Yes (Other)
  Sender: FDA-Public Use
  Company Number: CHNY2008AU02690

PATIENT
  Age: 35 Year
  Sex: Female

DRUGS (2)
  1. NICOTINE [Suspect]
     Indication: SMOKING CESSATION THERAPY
     Dosage: 21 MG QD TRANSDERMAL
     Route: 062
     Dates: start: 20080613, end: 20080626
  2. CONTRACEPTIVES NOS (NO INGREDIENTS/SUBSTANCES) [Concomitant]

REACTIONS (5)
  - APATHY [None]
  - ASTHENIA [None]
  - DEPRESSION [None]
  - IRRITABILITY [None]
  - MOOD ALTERED [None]
